FAERS Safety Report 9024921 (Version 2)
Quarter: 2013Q1

REPORT INFORMATION
  Report Type: Spontaneous
  Country: US (occurrence: US)
  Receive Date: 20130121
  Receipt Date: 20130123
  Transmission Date: 20140127
  Serious: Yes (Death, Hospitalization)
  Sender: FDA-Public Use
  Company Number: US-SP-2013-00827

PATIENT
  Age: 83 Year
  Sex: Male

DRUGS (1)
  1. THERACYS [Suspect]
     Indication: BLADDER CANCER
     Route: 043

REACTIONS (4)
  - Pneumonia aspiration [Fatal]
  - Pyrexia [Fatal]
  - Chills [Unknown]
  - Burning sensation [Unknown]
